FAERS Safety Report 7995997-7 (Version None)
Quarter: 2011Q4

REPORT INFORMATION
  Report Type: 
  Country: None (occurrence: None)
  Receive Date: 20111220
  Receipt Date: 20111207
  Transmission Date: 20120403
  Serious: Yes (Other)
  Sender: FDA-Public Use
  Company Number: PHHY2011HU100448

PATIENT
  Age: 42 Year
  Sex: Male

DRUGS (5)
  1. MEMANTINE HYDROCHLORIDE [Suspect]
     Indication: DEMENTIA ALZHEIMER'S TYPE
     Dosage: 10 MG, DAILY
     Dates: start: 20110613, end: 20110620
  2. ENALAPRIL MALEATE [Concomitant]
     Dosage: 5 MG, DAILY
  3. AMILOZID [Concomitant]
  4. EXELON [Suspect]
     Indication: DEMENTIA ALZHEIMER'S TYPE
     Dosage: 4.6 MG, DAILY
     Route: 062
     Dates: start: 20110613
  5. NITROMINT [Concomitant]

REACTIONS (5)
  - VERBIGERATION [None]
  - DEMENTIA [None]
  - INSOMNIA [None]
  - AGITATION [None]
  - DISTRACTIBILITY [None]
